FAERS Safety Report 9230841 (Version 2)
Quarter: 2013Q2

REPORT INFORMATION
  Report Type: Spontaneous
  Country: GB (occurrence: None)
  Receive Date: 20130411
  Receipt Date: 20130417
  Transmission Date: 20140414
  Serious: Yes (Disabling, Other)
  Sender: FDA-Public Use
  Company Number: AUR-APL-2013-02971

PATIENT
  Age: 70 Year
  Sex: Female
  Weight: 101 kg

DRUGS (7)
  1. ALENDRONIC ACID (ALENDRONIC ACID) [Suspect]
     Indication: PRODUCT USED FOR UNKNOWN INDICATION
     Dates: start: 20121203
  2. CALCIUM CARBONATE (CALCIUM CARBONATE) [Concomitant]
  3. OMEPRAZOLE (OMEPRAZOLE) [Concomitant]
  4. PARACETAMOL (PARACETAMOL) [Concomitant]
  5. PREDNISOLONE (PREDNISOLONE) [Concomitant]
  6. PREGABALIN (PREGABALIN) [Concomitant]
  7. RAMIPRIL (RAMIPRIL) [Suspect]

REACTIONS (1)
  - Osteonecrosis [None]
